FAERS Safety Report 23029820 (Version 1)
Quarter: 2023Q4

REPORT INFORMATION
  Report Type: Spontaneous
  Country: IN (occurrence: None)
  Receive Date: 20231004
  Receipt Date: 20231004
  Transmission Date: 20240110
  Serious: Yes (Death)
  Sender: FDA-Public Use
  Company Number: IN-Eisai Medical Research-EC-2023-150141

PATIENT
  Sex: Male

DRUGS (1)
  1. DAYVIGO [Suspect]
     Active Substance: LEMBOREXANT
     Indication: Product used for unknown indication
     Dosage: UNKNOWN FREQUENCY
     Route: 048

REACTIONS (1)
  - Illness [Fatal]

NARRATIVE: CASE EVENT DATE: 20230901
